FAERS Safety Report 5735402-4 (Version None)
Quarter: 2008Q2

REPORT INFORMATION
  Report Type: 
  Country: None (occurrence: None)
  Receive Date: 20080508
  Receipt Date: 20080508
  Transmission Date: 20081010
  Serious: Yes (Other)
  Sender: FDA-Public Use
  Company Number: None

PATIENT
  Sex: Male
  Weight: 77.1115 kg

DRUGS (1)
  1. CREST PRO HEALTH [Suspect]
     Indication: DENTAL DISORDER PROPHYLAXIS
     Dosage: 1 X DAILY
     Dates: start: 20060201, end: 20060630

REACTIONS (2)
  - TONGUE DISCOLOURATION [None]
  - TOOTH DISCOLOURATION [None]
